FAERS Safety Report 9897710 (Version 1)
Quarter: 2014Q1

REPORT INFORMATION
  Report Type: Spontaneous
  Country: US (occurrence: US)
  Receive Date: 20140214
  Receipt Date: 20140214
  Transmission Date: 20141002
  Serious: Yes (Hospitalization)
  Sender: FDA-Public Use
  Company Number: US-AMGEN-USASP2014009319

PATIENT
  Age: 63 Year
  Sex: Female

DRUGS (4)
  1. ARANESP [Suspect]
     Indication: PRODUCT USED FOR UNKNOWN INDICATION
     Dosage: 100 MUG, QWK
     Route: 065
  2. EPOGEN [Suspect]
     Indication: PRODUCT USED FOR UNKNOWN INDICATION
     Route: 065
  3. MULTIVITAMIN                       /00097801/ [Concomitant]
  4. FERROUS SULFATE [Concomitant]

REACTIONS (2)
  - Anaemia [Not Recovered/Not Resolved]
  - Transferrin increased [Unknown]
